FAERS Safety Report 6138278-9 (Version None)
Quarter: 2009Q1

REPORT INFORMATION
  Report Type: 
  Country: None (occurrence: None)
  Receive Date: 20090327
  Receipt Date: 20090327
  Transmission Date: 20090719
  Serious: No
  Sender: FDA-Public Use
  Company Number: None

PATIENT
  Age: 40 Year
  Sex: Female
  Weight: 108.8633 kg

DRUGS (2)
  1. MERIDIA [Suspect]
     Indication: WEIGHT CONTROL
     Dosage: 5MG DAILY PO
     Route: 048
     Dates: start: 20070207, end: 20070207
  2. XENICAL [Concomitant]

REACTIONS (6)
  - ANXIETY [None]
  - EMOTIONAL DISTRESS [None]
  - FEAR [None]
  - IMPULSIVE BEHAVIOUR [None]
  - RESTLESSNESS [None]
  - VISUAL IMPAIRMENT [None]
